FAERS Safety Report 6600110-4 (Version None)
Quarter: 2010Q1

REPORT INFORMATION
  Report Type: 
  Country: None (occurrence: None)
  Receive Date: 20100224
  Receipt Date: 20100216
  Transmission Date: 20100710
  Serious: Yes (Disabling)
  Sender: FDA-Public Use
  Company Number: GB-PFIZER INC-2010019807

PATIENT
  Age: 69 Year
  Sex: Male

DRUGS (7)
  1. SILDENAFIL CITRATE [Suspect]
     Indication: PULMONARY HYPERTENSION
     Dosage: 25 MG, 3X/DAY
     Route: 048
     Dates: start: 20080710
  2. ATORVASTATIN [Concomitant]
     Dosage: UNK
  3. BOSENTAN [Concomitant]
     Dosage: UNK
  4. INDAPAMIDE [Concomitant]
     Dosage: UNK
  5. PENICILLIN NOS [Concomitant]
     Dosage: UNK
  6. VALSARTAN [Concomitant]
     Dosage: UNK
  7. WARFARIN SODIUM [Concomitant]
     Dosage: UNK

REACTIONS (1)
  - SUDDEN HEARING LOSS [None]
